FAERS Safety Report 12172102 (Version 2)
Quarter: 2016Q2

REPORT INFORMATION
  Report Type: Spontaneous
  Country: US (occurrence: US)
  Receive Date: 20160311
  Receipt Date: 20160411
  Transmission Date: 20160815
  Serious: Yes (Hospitalization)
  Sender: FDA-Public Use
  Company Number: US-SHIRE-US201602562

PATIENT
  Age: 79 Year
  Sex: Male
  Weight: 72.56 kg

DRUGS (1)
  1. GATTEX [Suspect]
     Active Substance: TEDUGLUTIDE\WATER
     Indication: SHORT-BOWEL SYNDROME
     Dosage: 0.19 ML, 1X/DAY:QD
     Route: 058
     Dates: start: 20151210

REACTIONS (6)
  - Asthenia [Unknown]
  - Gastrointestinal stoma complication [Unknown]
  - Stoma site reaction [Unknown]
  - Dry mouth [Unknown]
  - Cholelithiasis [Unknown]
  - Decreased appetite [Unknown]

NARRATIVE: CASE EVENT DATE: 201603
